FAERS Safety Report 9630705 (Version 1)
Quarter: 2013Q4

REPORT INFORMATION
  Report Type: Spontaneous
  Country: GB (occurrence: None)
  Receive Date: 20131011
  Receipt Date: 20131011
  Transmission Date: 20140711
  Serious: Yes (Other)
  Sender: FDA-Public Use
  Company Number: CL-524-2013

PATIENT
  Age: 24 Year
  Sex: Male

DRUGS (2)
  1. HALOPERIDOL [Suspect]
     Indication: MENTAL DISORDER
  2. VALPROATE [Concomitant]

REACTIONS (4)
  - Hypothermia [None]
  - Weight decreased [None]
  - Chills [None]
  - Fatigue [None]
